FAERS Safety Report 13423543 (Version 1)
Quarter: 2017Q2

REPORT INFORMATION
  Report Type: Spontaneous
  Country: None (occurrence: DK)
  Receive Date: 20170410
  Receipt Date: 20170410
  Transmission Date: 20170830
  Serious: Yes (Hospitalization)
  Sender: FDA-Public Use
  Company Number: DK-MEDAC PHARMA, INC.-1065217

PATIENT
  Age: 59 Year
  Sex: Male

DRUGS (5)
  1. EBETREXAT [Suspect]
     Active Substance: METHOTREXATE SODIUM
     Dates: start: 2012
  2. CIMZIA [Suspect]
     Active Substance: CERTOLIZUMAB PEGOL
     Dates: start: 201511
  3. METEX (METHOTREXATE SODIUM) [Suspect]
     Active Substance: METHOTREXATE SODIUM
     Indication: PSORIATIC ARTHROPATHY
     Dates: start: 2012
  4. HJERTEMAGNYL [Concomitant]
     Active Substance: ASPIRIN\MAGNESIUM OXIDE
  5. CLOPIDOGREL [Concomitant]
     Active Substance: CLOPIDOGREL BISULFATE

REACTIONS (17)
  - Cough [Unknown]
  - Dialysis [Unknown]
  - Hepatic enzyme increased [Unknown]
  - Multiple organ dysfunction syndrome [Unknown]
  - Tracheostomy [Unknown]
  - Pulmonary fibrosis [Unknown]
  - Lung disorder [Unknown]
  - Renal impairment [Unknown]
  - Exercise tolerance decreased [Unknown]
  - Liver disorder [Unknown]
  - Dyspnoea [Not Recovered/Not Resolved]
  - Malaise [Unknown]
  - Diarrhoea [Unknown]
  - Ejection fraction decreased [Unknown]
  - Lung infection [Unknown]
  - Cardiac failure [Unknown]
  - Chronic obstructive pulmonary disease [Unknown]

NARRATIVE: CASE EVENT DATE: 20160222
